FAERS Safety Report 5972519-3 (Version None)
Quarter: 2008Q4

REPORT INFORMATION
  Report Type: 
  Country: None (occurrence: None)
  Receive Date: 20081201
  Receipt Date: 20081128
  Transmission Date: 20090506
  Serious: Yes (Other)
  Sender: FDA-Public Use
  Company Number: B0543399A

PATIENT
  Age: 23 Year
  Sex: Female
  Weight: 62 kg

DRUGS (17)
  1. ARRANON [Suspect]
     Dosage: 1500MGM2 PER DAY
     Route: 042
     Dates: start: 20080716, end: 20080720
  2. CYTARABINE [Concomitant]
     Indication: NEOPLASM MALIGNANT
     Dates: start: 20080416, end: 20080417
  3. METHOTREXATE [Concomitant]
     Indication: NEOPLASM MALIGNANT
     Dates: start: 20080215, end: 20080215
  4. PREDNISOLONE [Concomitant]
     Route: 048
     Dates: start: 20080710, end: 20080727
  5. NASEA [Concomitant]
     Indication: PROPHYLAXIS OF NAUSEA AND VOMITING
     Route: 048
     Dates: start: 20080716, end: 20080720
  6. ZYLORIC [Concomitant]
     Route: 048
     Dates: start: 20080716, end: 20080722
  7. DIFLUCAN [Concomitant]
     Indication: INFECTION PROPHYLAXIS
     Route: 048
     Dates: start: 20080216, end: 20080727
  8. TAKEPRON [Concomitant]
     Indication: PROPHYLAXIS
     Route: 048
     Dates: start: 20080215, end: 20080727
  9. COTRIM [Concomitant]
     Indication: INFECTION PROPHYLAXIS
     Route: 048
     Dates: start: 20080218, end: 20080727
  10. FUROSEMIDE [Concomitant]
     Dates: start: 20080716, end: 20080721
  11. MEYLON [Concomitant]
     Dates: start: 20080716, end: 20080721
  12. FRAGMIN [Concomitant]
     Indication: THROMBOSIS PROPHYLAXIS
     Dates: start: 20080719, end: 20080722
  13. GAMIMUNE N 5% [Concomitant]
     Dates: start: 20080723, end: 20080723
  14. DEXAMETHASONE [Concomitant]
     Dates: start: 20080727
  15. ETOPOSIDE [Concomitant]
     Dates: start: 20080727
  16. IFOSFAMIDE [Concomitant]
     Dates: start: 20080727
  17. CARBOPLATIN [Concomitant]
     Dates: start: 20080727

REACTIONS (2)
  - BONE MARROW TUMOUR CELL INFILTRATION [None]
  - THROMBOCYTOPENIA [None]
